FAERS Safety Report 23621626 (Version 2)
Quarter: 2024Q3

REPORT INFORMATION
  Report Type: Report from Study
  Country: ZA (occurrence: ZA)
  Receive Date: 20240312
  Receipt Date: 20240801
  Transmission Date: 20241016
  Serious: Yes (Congenital Anomaly)
  Sender: MYLAN
  Company Number: ZA-MYLANLABS-2024M1021825

PATIENT

DRUGS (2)
  1. DOLUTEGRAVIR\LAMIVUDINE\TENOFOVIR DISOPROXIL FUMARATE [Suspect]
     Active Substance: DOLUTEGRAVIR\LAMIVUDINE\TENOFOVIR DISOPROXIL FUMARATE
     Indication: HIV infection
     Dosage: 650 MILLIGRAM, QD
     Route: 048
     Dates: start: 20231101
  2. DOLUTEGRAVIR [Suspect]
     Active Substance: DOLUTEGRAVIR
     Indication: Product used for unknown indication
     Dosage: 50 MILLIGRAM, QD
     Route: 048
     Dates: start: 20240229, end: 20240607

REACTIONS (2)
  - Hypoplastic nasal cartilage [Unknown]
  - Foetal exposure during pregnancy [Unknown]
